FAERS Safety Report 9249534 (Version 2)
Quarter: 2013Q2

REPORT INFORMATION
  Report Type: Spontaneous
  Country: JP (occurrence: JP)
  Receive Date: 20130423
  Receipt Date: 20130606
  Transmission Date: 20140414
  Serious: Yes (Other)
  Sender: FDA-Public Use
  Company Number: JP-VERTEX PHARMACEUTICALS INC.-2013-005277

PATIENT
  Sex: Male

DRUGS (4)
  1. TELAVIC [Suspect]
     Dosage: 2250 MG, QD
     Route: 048
     Dates: start: 20130405, end: 20130408
  2. RIBAVIRIN [Concomitant]
     Dosage: 800 MG, QD
     Route: 048
     Dates: start: 20130405
  3. PEGINTRON [Concomitant]
     Dosage: 1.6 ?G/KG, UNK
     Route: 058
     Dates: start: 20130405
  4. FEBURIC [Concomitant]
     Route: 048

REACTIONS (1)
  - Erythema multiforme [Recovered/Resolved]
